FAERS Safety Report 9228424 (Version 1)
Quarter: 2013Q2

REPORT INFORMATION
  Report Type: Spontaneous
  Country: US (occurrence: US)
  Receive Date: 20130412
  Receipt Date: 20130412
  Transmission Date: 20140414
  Serious: No
  Sender: FDA-Public Use
  Company Number: US-009507513-1304USA005991

PATIENT
  Sex: Male

DRUGS (2)
  1. CORICIDIN HBP FLU [Suspect]
     Indication: NASOPHARYNGITIS
     Dosage: UNK, UNKNOWN
     Route: 048
     Dates: start: 20130104
  2. CORICIDIN HBP FLU [Suspect]
     Indication: MEDICAL OBSERVATION
     Dosage: 3 DF, UNKNOWN
     Route: 048
     Dates: start: 20130106

REACTIONS (5)
  - Diarrhoea [Unknown]
  - Pain [Unknown]
  - Rhinorrhoea [Unknown]
  - Malaise [Unknown]
  - Nonspecific reaction [Unknown]
